FAERS Safety Report 11763583 (Version 2)
Quarter: 2015Q4

REPORT INFORMATION
  Report Type: Spontaneous
  Country: US (occurrence: US)
  Receive Date: 20151121
  Receipt Date: 20151123
  Transmission Date: 20160304
  Serious: Yes (Death, Hospitalization)
  Sender: FDA-Public Use
  Company Number: CHPA2015US013827

PATIENT
  Age: 87 Year
  Sex: Male

DRUGS (1)
  1. VOLTAREN [Suspect]
     Active Substance: DICLOFENAC SODIUM
     Indication: NEUROPATHY PERIPHERAL
     Dosage: LITTLE BIT, BID BUT NOT EVERY DAY
     Route: 061
     Dates: start: 2008, end: 2014

REACTIONS (7)
  - Renal failure [Fatal]
  - Product use issue [Unknown]
  - Condition aggravated [Unknown]
  - Hyperkeratosis [Unknown]
  - Inappropriate schedule of drug administration [Unknown]
  - Hypertension [Fatal]
  - Limb injury [Unknown]

NARRATIVE: CASE EVENT DATE: 2014
